FAERS Safety Report 19389963 (Version 1)
Quarter: 2021Q2

REPORT INFORMATION
  Report Type: Spontaneous
  Country: US (occurrence: US)
  Receive Date: 20210608
  Receipt Date: 20210608
  Transmission Date: 20210717
  Serious: Yes (Other)
  Sender: FDA-Public Use
  Company Number: US-OTSUKA-2021_019084

PATIENT

DRUGS (1)
  1. ABILIFY [Suspect]
     Active Substance: ARIPIPRAZOLE
     Indication: PRODUCT USED FOR UNKNOWN INDICATION
     Dosage: UNK
     Route: 065

REACTIONS (7)
  - Job dissatisfaction [Unknown]
  - Musculoskeletal discomfort [Unknown]
  - Loss of consciousness [Unknown]
  - Near death experience [Unknown]
  - Palpitations [Unknown]
  - Somnolence [Unknown]
  - Headache [Unknown]
